FAERS Safety Report 9081561 (Version 1)
Quarter: 2013Q1

REPORT INFORMATION
  Report Type: Spontaneous
  Country: US (occurrence: US)
  Receive Date: 20130218
  Receipt Date: 20130218
  Transmission Date: 20140127
  Serious: No
  Sender: FDA-Public Use
  Company Number: US-PFIZER INC-2013058120

PATIENT
  Sex: Female

DRUGS (2)
  1. DILANTIN-125 [Suspect]
     Dosage: 200 MG, UNK
  2. DILANTIN-125 [Suspect]
     Dosage: 800 MG, UNK

REACTIONS (4)
  - Intentional drug misuse [Unknown]
  - Tremor [Unknown]
  - Dizziness [Unknown]
  - Fall [Unknown]
